FAERS Safety Report 24524325 (Version 1)
Quarter: 2024Q4

REPORT INFORMATION
  Report Type: Spontaneous
  Country: JP (occurrence: JP)
  Receive Date: 20241018
  Receipt Date: 20241018
  Transmission Date: 20250114
  Serious: Yes (Hospitalization, Other)
  Sender: ALEXION PHARMACEUTICALS
  Company Number: JP-ASTRAZENECA-240108175_010410_P_1

PATIENT
  Age: 69 Year

DRUGS (12)
  1. FULVESTRANT [Suspect]
     Active Substance: FULVESTRANT
     Indication: Breast cancer female
     Dosage: 250 MILLIGRAM
  2. FULVESTRANT [Suspect]
     Active Substance: FULVESTRANT
     Dosage: 250 MILLIGRAM
  3. FULVESTRANT [Suspect]
     Active Substance: FULVESTRANT
     Dosage: 250 MILLIGRAM
  4. FULVESTRANT [Suspect]
     Active Substance: FULVESTRANT
     Dosage: 250 MILLIGRAM
  5. ANASTROZOLE [Suspect]
     Active Substance: ANASTROZOLE
     Indication: Breast cancer female
     Dosage: 1 MILLIGRAM, QD
  6. ANASTROZOLE [Suspect]
     Active Substance: ANASTROZOLE
     Dosage: 1 MILLIGRAM, QD
  7. ANASTROZOLE [Suspect]
     Active Substance: ANASTROZOLE
     Dosage: 1 MILLIGRAM, QD
  8. ANASTROZOLE [Suspect]
     Active Substance: ANASTROZOLE
     Dosage: 1 MILLIGRAM, QD
  9. DENOSUMAB [Concomitant]
     Active Substance: DENOSUMAB
     Indication: Breast cancer female
     Dosage: DOSE UNKNOWN
     Route: 065
  10. DENOSUMAB [Concomitant]
     Active Substance: DENOSUMAB
     Dosage: DOSE UNKNOWN
  11. DENOSUMAB [Concomitant]
     Active Substance: DENOSUMAB
     Dosage: DOSE UNKNOWN
     Route: 065
  12. DENOSUMAB [Concomitant]
     Active Substance: DENOSUMAB
     Dosage: DOSE UNKNOWN

REACTIONS (5)
  - Fractured sacrum [Recovered/Resolved]
  - Pelvic fracture [Recovered/Resolved]
  - Metastases to bone [Unknown]
  - Spinal compression fracture [Unknown]
  - Osteoporosis [Unknown]
